FAERS Safety Report 8467317-5 (Version None)
Quarter: 2012Q2

REPORT INFORMATION
  Report Type: 
  Country: None (occurrence: None)
  Receive Date: 20120626
  Receipt Date: 20120613
  Transmission Date: 20120825
  Serious: No
  Sender: FDA-Public Use
  Company Number: US-ASTRAZENECA-2011SE19398

PATIENT
  Age: 54 Year
  Sex: Female

DRUGS (1)
  1. SEROQUEL XR [Suspect]
     Route: 048

REACTIONS (8)
  - MEMORY IMPAIRMENT [None]
  - POST-TRAUMATIC STRESS DISORDER [None]
  - THERAPEUTIC RESPONSE UNEXPECTED [None]
  - ANXIETY [None]
  - PANIC ATTACK [None]
  - DEPRESSION [None]
  - DRUG DOSE OMISSION [None]
  - TREMOR [None]
